FAERS Safety Report 6168585-5 (Version None)
Quarter: 2009Q2

REPORT INFORMATION
  Report Type: 
  Country: None (occurrence: None)
  Receive Date: 20090427
  Receipt Date: 20090423
  Transmission Date: 20091009
  Serious: Yes (Death, Other)
  Sender: FDA-Public Use
  Company Number: US-BRISTOL-MYERS SQUIBB COMPANY-14580062

PATIENT
  Age: 61 Year
  Sex: Male
  Weight: 158 kg

DRUGS (14)
  1. AVAPRO [Suspect]
     Route: 048
     Dates: start: 20061205
  2. BYETTA [Suspect]
     Dosage: (5 MCG) (PREFILLED PEN) FROM 20FEB07-27MAR07;(10 MCG) FROM 27MAR07-17APR07;STOP DATE WAS UNKNOWN
     Dates: start: 20070220
  3. DEMADEX [Concomitant]
  4. GLUCOPHAGE [Concomitant]
  5. ASPIRIN [Concomitant]
  6. IMDUR [Concomitant]
  7. K-DUR [Concomitant]
  8. LISINOPRIL [Concomitant]
  9. NORVASC [Concomitant]
  10. BYETTA [Concomitant]
  11. DOXAZOSIN MESYLATE [Concomitant]
  12. TRICOR [Concomitant]
  13. LANTUS [Concomitant]
  14. HUMALOG [Concomitant]

REACTIONS (4)
  - DEATH [None]
  - HEPATOTOXICITY [None]
  - RENAL FAILURE ACUTE [None]
  - RENAL TUBULAR NECROSIS [None]
